FAERS Safety Report 14441929 (Version 2)
Quarter: 2018Q1

REPORT INFORMATION
  Report Type: Spontaneous
  Country: FR (occurrence: FR)
  Receive Date: 20180125
  Receipt Date: 20180305
  Transmission Date: 20180509
  Serious: Yes (Other)
  Sender: FDA-Public Use
  Company Number: PHHY2018FR012420

PATIENT
  Sex: Male
  Weight: 69 kg

DRUGS (2)
  1. WYTENS [Concomitant]
     Active Substance: GUANABENZ ACETATE
     Indication: PRODUCT USED FOR UNKNOWN INDICATION
     Dosage: UNK
     Route: 065
  2. TERBINAFINE. [Suspect]
     Active Substance: TERBINAFINE
     Indication: PRODUCT USED FOR UNKNOWN INDICATION
     Dosage: 250 MG, QD
     Route: 048
     Dates: start: 20170714, end: 20170801

REACTIONS (4)
  - Neutropenia [Unknown]
  - Rash morbilliform [Unknown]
  - Thrombocytopenia [Unknown]
  - Ageusia [Unknown]

NARRATIVE: CASE EVENT DATE: 20170720
